FAERS Safety Report 25403865 (Version 1)
Quarter: 2025Q2

REPORT INFORMATION
  Report Type: Spontaneous
  Country: CN (occurrence: CN)
  Receive Date: 20250606
  Receipt Date: 20250606
  Transmission Date: 20250716
  Serious: Yes (Hospitalization, Other)
  Sender: NOVO NORDISK
  Company Number: CN-NOVOPROD-1437591

PATIENT
  Sex: Male
  Weight: 71.5 kg

DRUGS (3)
  1. RYZODEG 70/30 [Concomitant]
     Active Substance: INSULIN ASPART\INSULIN DEGLUDEC
     Indication: Product used for unknown indication
     Dates: start: 20250512
  2. INSULIN ASPART [Suspect]
     Active Substance: INSULIN ASPART
     Dosage: 16 IU, BID
  3. INSULIN ASPART [Suspect]
     Active Substance: INSULIN ASPART
     Indication: Type 2 diabetes mellitus
     Dosage: 10 IU, BID

REACTIONS (10)
  - Dry mouth [Recovering/Resolving]
  - Vision blurred [Recovering/Resolving]
  - Diabetic nephropathy [Recovering/Resolving]
  - Cerebral infarction [Recovering/Resolving]
  - Arteriosclerosis [Recovering/Resolving]
  - Hyperlipidaemia [Recovering/Resolving]
  - Hypertension [Recovering/Resolving]
  - Fatigue [Recovering/Resolving]
  - Diabetic neuropathy [Recovering/Resolving]
  - Blood glucose increased [Recovering/Resolving]
